FAERS Safety Report 16626186 (Version 6)
Quarter: 2019Q3

REPORT INFORMATION
  Report Type: Report from Study
  Country: US (occurrence: US)
  Receive Date: 20190724
  Receipt Date: 20190926
  Transmission Date: 20191004
  Serious: Yes (Other)
  Sender: FDA-Public Use
  Company Number: US-JNJFOC-20190614175

PATIENT
  Age: 75 Year
  Sex: Male

DRUGS (6)
  1. IMBRUVICA [Suspect]
     Active Substance: IBRUTINIB
     Route: 048
     Dates: start: 20190624
  2. IMBRUVICA [Suspect]
     Active Substance: IBRUTINIB
     Route: 048
     Dates: start: 20190719, end: 20190816
  3. IMBRUVICA [Suspect]
     Active Substance: IBRUTINIB
     Indication: EXTRANODAL MARGINAL ZONE B-CELL LYMPHOMA (MALT TYPE)
     Route: 048
     Dates: start: 20190529
  4. IMBRUVICA [Suspect]
     Active Substance: IBRUTINIB
     Route: 048
     Dates: start: 20190627
  5. IMBRUVICA [Suspect]
     Active Substance: IBRUTINIB
     Route: 048
  6. IMBRUVICA [Suspect]
     Active Substance: IBRUTINIB
     Route: 048
     Dates: start: 20190530, end: 20190621

REACTIONS (17)
  - Myalgia [Unknown]
  - Blood count abnormal [Unknown]
  - Osteoarthritis [Unknown]
  - Night sweats [Recovering/Resolving]
  - Energy increased [Recovering/Resolving]
  - Hypertension [Not Recovered/Not Resolved]
  - Chest discomfort [Unknown]
  - Cough [Not Recovered/Not Resolved]
  - Extrasystoles [Recovered/Resolved]
  - Diarrhoea [Unknown]
  - Tremor [Unknown]
  - Contusion [Unknown]
  - Drug ineffective [Unknown]
  - Off label use [Unknown]
  - Incorrect dose administered [Unknown]
  - Asthenia [Unknown]
  - Eye disorder [Recovered/Resolved]

NARRATIVE: CASE EVENT DATE: 20190530
